FAERS Safety Report 13954275 (Version 1)
Quarter: 2017Q3

REPORT INFORMATION
  Report Type: Spontaneous
  Country: US (occurrence: US)
  Receive Date: 20170911
  Receipt Date: 20170911
  Transmission Date: 20171128
  Serious: Yes (Other)
  Sender: FDA-Public Use
  Company Number: US-ASTRAZENECA-2016SE36259

PATIENT
  Age: 703 Month
  Sex: Female

DRUGS (2)
  1. ZOMIG [Suspect]
     Active Substance: ZOLMITRIPTAN
     Indication: MIGRAINE
     Dosage: IN THE LATE 1980^S OR EARLY 1990^S
     Route: 048
  2. ZOMIG [Suspect]
     Active Substance: ZOLMITRIPTAN
     Indication: MIGRAINE
     Route: 048
     Dates: start: 2001

REACTIONS (2)
  - Lymphoma [Unknown]
  - Memory impairment [Unknown]

NARRATIVE: CASE EVENT DATE: 200912
